FAERS Safety Report 7111518-5 (Version None)
Quarter: 2010Q4

REPORT INFORMATION
  Report Type: 
  Country: None (occurrence: None)
  Receive Date: 20101118
  Receipt Date: 20101112
  Transmission Date: 20110411
  Serious: Yes (Other)
  Sender: FDA-Public Use
  Company Number: US-CEPHALON-2010005931

PATIENT
  Sex: Female
  Weight: 50 kg

DRUGS (10)
  1. PROVIGIL [Suspect]
     Indication: FATIGUE
     Route: 048
     Dates: start: 20090101, end: 20090601
  2. LANTUS [Concomitant]
  3. SYNTHROID [Concomitant]
  4. ZOLOFT [Concomitant]
  5. XALATAN [Concomitant]
  6. IMDUR [Concomitant]
  7. PLAVIX [Concomitant]
  8. ASPIRIN [Concomitant]
  9. TOPROL-XL [Concomitant]
  10. PRAVACHOL [Concomitant]

REACTIONS (2)
  - CARDIAC DISORDER [None]
  - GLAUCOMA [None]
